FAERS Safety Report 6233698-6 (Version None)
Quarter: 2009Q2

REPORT INFORMATION
  Report Type: 
  Country: None (occurrence: None)
  Receive Date: 20090617
  Receipt Date: 20090615
  Transmission Date: 20091009
  Serious: Yes (Hospitalization, Other)
  Sender: FDA-Public Use
  Company Number: US-AMGEN-US345489

PATIENT
  Sex: Female

DRUGS (5)
  1. NPLATE [Suspect]
     Indication: IDIOPATHIC THROMBOCYTOPENIC PURPURA
     Route: 065
     Dates: start: 20090324
  2. COLACE [Concomitant]
  3. TOPROL-XL [Concomitant]
  4. ZANTAC [Concomitant]
  5. MULTI-VITAMINS [Concomitant]

REACTIONS (2)
  - PETECHIAE [None]
  - THERAPEUTIC RESPONSE DECREASED [None]
